FAERS Safety Report 4466738-5 (Version None)
Quarter: 2004Q3

REPORT INFORMATION
  Report Type: 
  Country: None (occurrence: None)
  Receive Date: 20040930
  Receipt Date: 20040923
  Transmission Date: 20050211
  Serious: Yes (Other)
  Sender: FDA-Public Use
  Company Number: 2004235124US

PATIENT
  Sex: Female

DRUGS (1)
  1. DETROL LA [Suspect]
     Dosage: 4 MG, ORAL
     Route: 048

REACTIONS (3)
  - CATATONIA [None]
  - DRUG INEFFECTIVE [None]
  - MIDDLE INSOMNIA [None]
